FAERS Safety Report 9344696 (Version 1)
Quarter: 2013Q2

REPORT INFORMATION
  Report Type: Spontaneous
  Country: US (occurrence: None)
  Receive Date: 20130611
  Receipt Date: 20130611
  Transmission Date: 20140414
  Serious: No
  Sender: FDA-Public Use
  Company Number: None

PATIENT
  Sex: 0

DRUGS (1)
  1. OXYTOCIN [Suspect]
     Dates: start: 20130211, end: 20130311

REACTIONS (2)
  - Drug effect decreased [None]
  - Product quality issue [None]
